FAERS Safety Report 7444512-5 (Version None)
Quarter: 2011Q2

REPORT INFORMATION
  Report Type: 
  Country: None (occurrence: None)
  Receive Date: 20110429
  Receipt Date: 20110415
  Transmission Date: 20111010
  Serious: Yes (Other)
  Sender: FDA-Public Use
  Company Number: RU-ELI_LILLY_AND_COMPANY-RU201007002870

PATIENT
  Sex: Female

DRUGS (2)
  1. VINORELBINE [Concomitant]
  2. GEMZAR [Suspect]
     Indication: HODGKIN'S DISEASE
     Dosage: 1250 MG/M2, ONCE EVERY 2 WEEKS
     Route: 042
     Dates: start: 20100608, end: 20100702

REACTIONS (3)
  - DIARRHOEA [None]
  - OFF LABEL USE [None]
  - ENTEROCOLITIS HAEMORRHAGIC [None]
